FAERS Safety Report 9845050 (Version 2)
Quarter: 2014Q1

REPORT INFORMATION
  Report Type: Spontaneous
  Country: JP (occurrence: None)
  Receive Date: 20140122
  Receipt Date: 20140205
  Transmission Date: 20141002
  Serious: Yes (Life-Threatening, Hospitalization)
  Sender: FDA-Public Use
  Company Number: DSJ-2013-27793

PATIENT
  Age: 56 Year
  Sex: Female
  Weight: 70.5 kg

DRUGS (7)
  1. OLMETEC [Suspect]
     Indication: HYPERTENSION
     Dosage: 20 MG (20 MG, 1 IN 1 D), PER ORAL
     Route: 048
     Dates: end: 20131209
  2. LIMAS (LITHIUM CARBONATE) [Concomitant]
  3. LAMICTAL (LAMOTRIGINE) [Concomitant]
  4. NITRAZEPAM (NITRAZEMPAM) [Concomitant]
  5. SEROQUEL (QUETIAPINE FUMARATE) [Concomitant]
  6. ALOSENN (SENNA ALEXANDRINA) [Concomitant]
  7. BISACODYL (BISACODYL) [Concomitant]

REACTIONS (5)
  - Blood urea increased [None]
  - Blood creatinine increased [None]
  - Toxicity to various agents [None]
  - Dizziness [None]
  - Renal impairment [None]
